FAERS Safety Report 5489445-9 (Version None)
Quarter: 2007Q4

REPORT INFORMATION
  Report Type: 
  Country: None (occurrence: None)
  Receive Date: 20071016
  Receipt Date: 20071016
  Transmission Date: 20080405
  Serious: Yes (Hospitalization)
  Sender: FDA-Public Use
  Company Number: None

PATIENT
  Age: 79 Year
  Sex: Male

DRUGS (2)
  1. AMIODARONE HCL [Suspect]
     Indication: ATRIAL FIBRILLATION
     Dosage: 200MG  BID  PO
     Route: 048
     Dates: start: 20070917, end: 20071005
  2. WARFARIN SODIUM [Suspect]
     Indication: ATRIAL FIBRILLATION
     Dosage: 2MG  EVERY DAY  PO
     Route: 048
     Dates: start: 20070925

REACTIONS (1)
  - INTERNATIONAL NORMALISED RATIO INCREASED [None]
